FAERS Safety Report 7398568-9 (Version None)
Quarter: 2011Q2

REPORT INFORMATION
  Report Type: 
  Country: None (occurrence: None)
  Receive Date: 20110407
  Receipt Date: 20110329
  Transmission Date: 20111010
  Serious: No
  Sender: FDA-Public Use
  Company Number: US-BIOGENIDEC-2011BI011846

PATIENT
  Age: 45 Year
  Sex: Female

DRUGS (3)
  1. TYSABRI [Suspect]
     Indication: MULTIPLE SCLEROSIS
     Route: 042
     Dates: start: 20110328
  2. PROVIGIL [Concomitant]
     Indication: FATIGUE
  3. PROVIGIL [Concomitant]
     Indication: SOMNOLENCE

REACTIONS (1)
  - BLOOD GLUCOSE DECREASED [None]
